FAERS Safety Report 9406660 (Version 3)
Quarter: 2013Q3

REPORT INFORMATION
  Report Type: Spontaneous
  Country: US (occurrence: US)
  Receive Date: 20130718
  Receipt Date: 20130829
  Transmission Date: 20140515
  Serious: No
  Sender: FDA-Public Use
  Company Number: US-BIOGENIDEC-2013BI063004

PATIENT
  Age: 54 Year
  Sex: Female

DRUGS (3)
  1. TYSABRI [Suspect]
     Indication: MULTIPLE SCLEROSIS
     Route: 042
     Dates: start: 20130416
  2. AVONEX [Concomitant]
     Indication: MULTIPLE SCLEROSIS
     Route: 030
  3. BETASERON [Concomitant]
     Indication: MULTIPLE SCLEROSIS
     Dates: start: 200804, end: 201304

REACTIONS (19)
  - Nausea [Unknown]
  - Headache [Unknown]
  - Chills [Unknown]
  - Vomiting [Recovered/Resolved]
  - Hypersensitivity [Unknown]
  - Muscular weakness [Not Recovered/Not Resolved]
  - Photosensitivity reaction [Unknown]
  - Temperature intolerance [Unknown]
  - Migraine [Recovered/Resolved]
  - Abdominal tenderness [Not Recovered/Not Resolved]
  - Disturbance in attention [Recovered/Resolved]
  - Feeling hot [Recovered/Resolved]
  - Thirst [Recovered/Resolved]
  - Tremor [Recovered/Resolved]
  - Local swelling [Not Recovered/Not Resolved]
  - Blood pressure increased [Recovered/Resolved]
  - Dizziness [Recovered/Resolved]
  - Urinary tract infection [Unknown]
  - Rash [Not Recovered/Not Resolved]
